FAERS Safety Report 7885371-6 (Version None)
Quarter: 2011Q4

REPORT INFORMATION
  Report Type: 
  Country: None (occurrence: None)
  Receive Date: 20111102
  Receipt Date: 20111014
  Transmission Date: 20120403
  Serious: Yes (Other)
  Sender: FDA-Public Use
  Company Number: US-PFIZER INC-2011246989

PATIENT
  Sex: Male
  Weight: 74.376 kg

DRUGS (2)
  1. ATGAM [Suspect]
     Indication: APLASTIC ANAEMIA
     Dosage: 2900 MG, UNK
     Dates: start: 20111014
  2. VALTREX [Concomitant]
     Indication: ANTIVIRAL TREATMENT
     Dosage: 500 MG, 2X/DAY

REACTIONS (1)
  - ANAPHYLACTIC REACTION [None]
